FAERS Safety Report 6596345-X (Version None)
Quarter: 2010Q1

REPORT INFORMATION
  Report Type: 
  Country: None (occurrence: None)
  Receive Date: 20100223
  Receipt Date: 20100213
  Transmission Date: 20100710
  Serious: Yes (Hospitalization)
  Sender: FDA-Public Use
  Company Number: FR-ELI_LILLY_AND_COMPANY-FR201002003832

PATIENT
  Sex: Female

DRUGS (3)
  1. BYETTA [Suspect]
     Dosage: 10 UG, UNKNOWN
     Route: 058
  2. AMAREL [Concomitant]
     Dosage: UNK, UNKNOWN
     Route: 065
  3. DIAMICRON [Concomitant]
     Dosage: UNK, UNKNOWN
     Route: 065

REACTIONS (1)
  - RENAL FAILURE ACUTE [None]
